FAERS Safety Report 8696153 (Version 2)
Quarter: 2012Q4

REPORT INFORMATION
  Report Type: 
  Country: US (occurrence: US)
  Receive Date: 20120801
  Receipt Date: 20120928
  Transmission Date: 20130627
  Serious: No
  Sender: FDA-Public Use
  Company Number: US-009507513-1207USA004739

PATIENT

DRUGS (1)
  1. IMPLANON [Suspect]
     Indication: CONTRACEPTION
     Dosage: UNK
     Dates: start: 2009

REACTIONS (4)
  - Drug administered at inappropriate site [Unknown]
  - Medical device complication [Unknown]
  - No adverse event [Unknown]
  - Device issue [None]
